FAERS Safety Report 22197363 (Version 1)
Quarter: 2023Q2

REPORT INFORMATION
  Report Type: Spontaneous
  Country: US (occurrence: None)
  Receive Date: 20230411
  Receipt Date: 20230411
  Transmission Date: 20230722
  Serious: No
  Sender: FDA-Public Use
  Company Number: None

PATIENT
  Age: 60 Year
  Sex: Female
  Weight: 86.18 kg

DRUGS (12)
  1. KISQALI [Suspect]
     Active Substance: RIBOCICLIB
     Indication: Breast cancer female
     Dosage: OTHER FREQUENCY : 21DON7DOFF;?
     Route: 048
  2. ADVIL [Concomitant]
  3. ASCORBIC ACID [Concomitant]
  4. FULVESTRANT [Concomitant]
  5. LETROZOLE [Concomitant]
  6. LOSARTAN [Concomitant]
  7. SILVADENE [Concomitant]
  8. TRIAMCINOLONE [Concomitant]
  9. VITAMIN B12 [Concomitant]
     Active Substance: CYANOCOBALAMIN
  10. VITAMIN D3 [Concomitant]
  11. XGEVA [Concomitant]
  12. ZINC [Concomitant]

REACTIONS (2)
  - Disease progression [None]
  - Therapy cessation [None]
